FAERS Safety Report 25369369 (Version 2)
Quarter: 2025Q2

REPORT INFORMATION
  Report Type: Report from Study
  Country: US (occurrence: US)
  Receive Date: 20250528
  Receipt Date: 20250529
  Transmission Date: 20250717
  Serious: Yes (Death, Hospitalization)
  Sender: JOHNSON AND JOHNSON
  Company Number: US-JNJFOC-20250533635

PATIENT
  Age: 66 Year
  Sex: Male
  Weight: 70.307 kg

DRUGS (29)
  1. DARATUMUMAB [Suspect]
     Active Substance: DARATUMUMAB
     Indication: Plasma cell myeloma refractory
     Dosage: WEEKLY FOR CYCLES 1 AND 2, EVERY 2 WEEKS FOR CYCLES 3 THROUGH 6  AND EVERY 4 WEEKS FROM CYCLE 7 AND
     Route: 058
     Dates: start: 20240417, end: 20250429
  2. DARATUMUMAB [Suspect]
     Active Substance: DARATUMUMAB
     Route: 058
     Dates: start: 20230406, end: 20230601
  3. DARATUMUMAB [Suspect]
     Active Substance: DARATUMUMAB
     Route: 058
     Dates: start: 20210528, end: 20220121
  4. DARATUMUMAB [Suspect]
     Active Substance: DARATUMUMAB
     Route: 058
     Dates: start: 20220415, end: 20230331
  5. ETENTAMIG [Suspect]
     Active Substance: ETENTAMIG
     Indication: Plasma cell myeloma refractory
     Route: 042
     Dates: start: 20240416, end: 20250429
  6. DEXAMETHASONE [Suspect]
     Active Substance: DEXAMETHASONE
     Indication: Plasma cell myeloma refractory
     Route: 048
     Dates: start: 20240416, end: 20250429
  7. DEXAMETHASONE [Suspect]
     Active Substance: DEXAMETHASONE
     Route: 048
     Dates: start: 20230406, end: 20230601
  8. DEXAMETHASONE [Suspect]
     Active Substance: DEXAMETHASONE
     Route: 048
     Dates: start: 20230703, end: 20240320
  9. DEXAMETHASONE [Suspect]
     Active Substance: DEXAMETHASONE
     Route: 048
     Dates: start: 20210528, end: 20220121
  10. DEXAMETHASONE [Suspect]
     Active Substance: DEXAMETHASONE
     Route: 048
     Dates: start: 20220415, end: 20230331
  11. LENALIDOMIDE [Suspect]
     Active Substance: LENALIDOMIDE
     Indication: Plasma cell myeloma
     Route: 065
     Dates: start: 20230406, end: 20230601
  12. LENALIDOMIDE [Suspect]
     Active Substance: LENALIDOMIDE
     Route: 065
     Dates: start: 20210528, end: 20220121
  13. BORTEZOMIB [Suspect]
     Active Substance: BORTEZOMIB
     Indication: Plasma cell myeloma
     Route: 065
     Dates: start: 20210528, end: 20220121
  14. CARFILZOMIB [Suspect]
     Active Substance: CARFILZOMIB
     Indication: Plasma cell myeloma
     Route: 065
     Dates: start: 20220415, end: 20230331
  15. ASPIRIN [Concomitant]
     Active Substance: ASPIRIN
     Indication: Thrombosis prophylaxis
     Dates: start: 20230915
  16. HYDROCHLOROTHIAZIDE [Concomitant]
     Active Substance: HYDROCHLOROTHIAZIDE
     Indication: Hypertension
     Dates: start: 20230829
  17. ENTECAVIR [Concomitant]
     Active Substance: ENTECAVIR
     Indication: Antiviral prophylaxis
     Dates: start: 20230719
  18. ACYCLOVIR [Concomitant]
     Active Substance: ACYCLOVIR
     Indication: Antiviral prophylaxis
     Dates: start: 20230619
  19. INSULIN GLARGINE [Concomitant]
     Active Substance: INSULIN GLARGINE
     Indication: Hyperglycaemia
     Dates: start: 2019
  20. METFORMIN [Concomitant]
     Active Substance: METFORMIN HYDROCHLORIDE
     Indication: Type 2 diabetes mellitus
     Dates: start: 2022
  21. METFORMIN [Concomitant]
     Active Substance: METFORMIN HYDROCHLORIDE
     Indication: Hyperglycaemia
  22. PATIROMER [Concomitant]
     Active Substance: PATIROMER
     Indication: Hyperkalaemia
     Dates: start: 20230825
  23. CHLORHEXIDINE [Concomitant]
     Active Substance: CHLORHEXIDINE
     Indication: Oral cavity fistula
     Dates: start: 20240425
  24. OXYCODONE [Concomitant]
     Active Substance: OXYCODONE
     Indication: Oral pain
     Dates: start: 20230906
  25. OXYCODONE [Concomitant]
     Active Substance: OXYCODONE
     Dates: start: 20240618
  26. ATORVASTATIN [Concomitant]
     Active Substance: ATORVASTATIN
     Indication: Hyperlipidaemia
     Dates: start: 20240918
  27. SENNA AND DOCUSATE [Concomitant]
     Indication: Constipation
     Dates: start: 20250416
  28. PANTOPRAZOLE [Concomitant]
     Active Substance: PANTOPRAZOLE
     Indication: Gastrooesophageal reflux disease
     Dates: start: 20230915
  29. GABAPENTIN [Concomitant]
     Active Substance: GABAPENTIN
     Indication: Product used for unknown indication

REACTIONS (1)
  - Pericarditis [Fatal]

NARRATIVE: CASE EVENT DATE: 20250517
